FAERS Safety Report 14236001 (Version 1)
Quarter: 2017Q4

REPORT INFORMATION
  Report Type: Spontaneous
  Country: US (occurrence: US)
  Receive Date: 20171129
  Receipt Date: 20171129
  Transmission Date: 20180321
  Serious: Yes (Other)
  Sender: FDA-Public Use
  Company Number: US-BAYER-2017-206044

PATIENT
  Age: 26 Year
  Sex: Female

DRUGS (2)
  1. MIRENA [Suspect]
     Active Substance: LEVONORGESTREL
     Indication: CONTRACEPTION
  2. MIRENA [Suspect]
     Active Substance: LEVONORGESTREL
     Indication: CONTRACEPTION
     Dosage: 20 MCG/24HR, CONT
     Route: 015
     Dates: start: 20150604, end: 20171010

REACTIONS (6)
  - Device dislocation [None]
  - Vulvovaginal pruritus [None]
  - Abdominal pain lower [None]
  - Vulvovaginal pruritus [None]
  - Vulvovaginal burning sensation [None]
  - Vulvovaginal burning sensation [None]

NARRATIVE: CASE EVENT DATE: 201512
